FAERS Safety Report 8549536-2 (Version None)
Quarter: 2012Q3

REPORT INFORMATION
  Report Type: 
  Country: None (occurrence: None)
  Receive Date: 20120730
  Receipt Date: 20120724
  Transmission Date: 20120928
  Serious: Yes (Other)
  Sender: FDA-Public Use
  Company Number: US-PFIZER INC-2012179440

PATIENT
  Sex: Male
  Weight: 53 kg

DRUGS (1)
  1. PROTONIX [Suspect]
     Indication: GASTROINTESTINAL HAEMORRHAGE
     Dosage: 40 MG, 1X/DAY
     Route: 048
     Dates: start: 20120604

REACTIONS (6)
  - RED BLOOD CELL COUNT DECREASED [None]
  - PRODUCT SIZE ISSUE [None]
  - HAEMOGLOBIN DECREASED [None]
  - BLOOD CREATININE DECREASED [None]
  - HAEMATOCRIT DECREASED [None]
  - DEVICE OCCLUSION [None]
